FAERS Safety Report 8486328-7 (Version None)
Quarter: 2012Q3

REPORT INFORMATION
  Report Type: 
  Country: None (occurrence: None)
  Receive Date: 20120703
  Receipt Date: 20120625
  Transmission Date: 20120928
  Serious: Yes (Death, Hospitalization, Other)
  Sender: FDA-Public Use
  Company Number: US-GLAXOSMITHKLINE-A0972406A

PATIENT
  Age: 67 Year
  Sex: Male

DRUGS (11)
  1. FLOLAN [Suspect]
     Indication: COR PULMONALE CHRONIC
     Dosage: 26.5NGKM PER DAY
     Route: 042
     Dates: start: 20111005
  2. PRILOSEC [Concomitant]
  3. UNSPECIFIED DRUG [Concomitant]
  4. BACTRIM [Concomitant]
  5. LACTULOSE [Concomitant]
  6. XIFAXAN [Concomitant]
  7. K-TAB [Concomitant]
  8. BACTRIM DS [Concomitant]
  9. FOSAMAX [Concomitant]
  10. REVATIO [Concomitant]
  11. ROXICODONE [Concomitant]

REACTIONS (18)
  - HEPATIC NEOPLASM MALIGNANT [None]
  - THROMBOCYTOPENIA [None]
  - ASCITES [None]
  - SEPSIS [None]
  - ANXIETY [None]
  - PULMONARY ARTERIAL HYPERTENSION [None]
  - HEPATORENAL SYNDROME [None]
  - DYSPNOEA [None]
  - AZOTAEMIA [None]
  - CANDIDURIA [None]
  - MENTAL STATUS CHANGES [None]
  - MALNUTRITION [None]
  - HYPOXIA [None]
  - HEPATIC ENCEPHALOPATHY [None]
  - HEPATIC INFECTION [None]
  - CHRONIC HEPATIC FAILURE [None]
  - HYPOTENSION [None]
  - WHITE BLOOD CELL COUNT INCREASED [None]
